FAERS Safety Report 10180374 (Version 1)
Quarter: 2014Q2

REPORT INFORMATION
  Report Type: Spontaneous
  Country: US (occurrence: US)
  Receive Date: 20140519
  Receipt Date: 20140519
  Transmission Date: 20141212
  Serious: No
  Sender: FDA-Public Use
  Company Number: US-AMGEN INC.-USASP2013074681

PATIENT
  Age: 71 Year
  Sex: Male

DRUGS (2)
  1. PROLIA [Suspect]
     Indication: BONE DENSITY ABNORMAL
     Dosage: 60 MG, Q6MO
     Route: 065
     Dates: start: 20130416
  2. ELIGARD [Concomitant]
     Dosage: UNK
     Dates: start: 20130416

REACTIONS (1)
  - Malaise [Recovered/Resolved]
